FAERS Safety Report 6124130-1 (Version None)
Quarter: 2009Q1

REPORT INFORMATION
  Report Type: 
  Country: None (occurrence: None)
  Receive Date: 20090319
  Receipt Date: 20090305
  Transmission Date: 20090719
  Serious: Yes (Other)
  Sender: FDA-Public Use
  Company Number: NZ-ROCHE-615064

PATIENT
  Sex: Male

DRUGS (5)
  1. XELODA [Suspect]
     Indication: COLORECTAL CANCER
     Dosage: DOSE: 2000 MG BD.
     Route: 048
     Dates: start: 20080201, end: 20080530
  2. DILTIAZEM [Concomitant]
     Indication: HYPERTENSION
     Dosage: DOSE FREQUENCY: OD
     Route: 048
  3. THYROXINE [Concomitant]
     Indication: HYPOTHYROIDISM
     Dosage: DOSE FREQUENCY: OD
     Route: 048
  4. LIPITOR [Concomitant]
     Indication: HYPERCHOLESTEROLAEMIA
     Dosage: DOSE FREQUENCY: OD
     Route: 048
  5. LOSEC [Concomitant]
     Route: 048

REACTIONS (2)
  - PAIN IN EXTREMITY [None]
  - PERIPHERAL ISCHAEMIA [None]
